FAERS Safety Report 5104216-0 (Version None)
Quarter: 2006Q3

REPORT INFORMATION
  Report Type: 
  Country: None (occurrence: None)
  Receive Date: 20060911
  Receipt Date: 20060825
  Transmission Date: 20061208
  Serious: Yes (Other)
  Sender: FDA-Public Use
  Company Number: 2006-DE-03029GD

PATIENT
  Age: 56 Year
  Sex: Female

DRUGS (2)
  1. PREDNISONE [Suspect]
     Indication: COELIAC DISEASE
     Dosage: 20 MG
  2. CAMPATH [Suspect]
     Indication: COELIAC DISEASE
     Dosage: SEE IMAGE

REACTIONS (5)
  - BIOPSY INTESTINE ABNORMAL [None]
  - COELIAC DISEASE [None]
  - CONDITION AGGRAVATED [None]
  - CYTOMEGALOVIRUS INFECTION [None]
  - T-LYMPHOCYTE COUNT INCREASED [None]
